FAERS Safety Report 4730987-9 (Version None)
Quarter: 2005Q3

REPORT INFORMATION
  Report Type: 
  Country: None (occurrence: None)
  Receive Date: 20050726
  Receipt Date: 20041011
  Transmission Date: 20060218
  Serious: Yes (Other)
  Sender: FDA-Public Use
  Company Number: 04GER0239

PATIENT
  Age: 60 Year
  Sex: Male

DRUGS (4)
  1. AGGRASTAT [Suspect]
     Indication: MYOCARDIAL INFARCTION
     Dates: start: 20040826, end: 20040828
  2. ASPIRIN [Concomitant]
  3. CLOPIDOGREL BISULFATE [Concomitant]
  4. HEPARIN [Concomitant]

REACTIONS (1)
  - THROMBOCYTOPENIA [None]
